FAERS Safety Report 4774667-2 (Version None)
Quarter: 2005Q3

REPORT INFORMATION
  Report Type: 
  Country: None (occurrence: None)
  Receive Date: 20050919
  Receipt Date: 20050908
  Transmission Date: 20060218
  Serious: Yes (Disabling, Other)
  Sender: FDA-Public Use
  Company Number: GXKR2005JP01189

PATIENT
  Age: 59 Year
  Sex: Female

DRUGS (3)
  1. RIFAMPICIN [Suspect]
     Indication: PULMONARY TUBERCULOSIS
     Dosage: 450 MG, QD, ORAL
     Route: 048
     Dates: start: 20000501, end: 20010224
  2. ISONIAZID [Suspect]
     Indication: PULMONARY TUBERCULOSIS
     Dosage: ORAL
     Route: 048
     Dates: start: 20000501, end: 20000901
  3. ETHAMBUTOL (NG)(ETHAMBUTOL) [Suspect]
     Indication: PULMONARY TUBERCULOSIS
     Dosage: 1 G, QD, ORA
     Route: 048
     Dates: start: 20000501, end: 20010224

REACTIONS (3)
  - HYPOAESTHESIA [None]
  - OPTIC NEUROPATHY [None]
  - PUPILLARY REFLEX IMPAIRED [None]
